FAERS Safety Report 18957737 (Version 1)
Quarter: 2021Q1

REPORT INFORMATION
  Report Type: Spontaneous
  Country: US (occurrence: US)
  Receive Date: 20210302
  Receipt Date: 20210302
  Transmission Date: 20210420
  Serious: Yes (Hospitalization, Other)
  Sender: FDA-Public Use
  Company Number: US-LUPIN PHARMACEUTICALS INC.-2021-02501

PATIENT
  Age: 27 Year
  Sex: Female

DRUGS (3)
  1. VANCOMYCIN [Suspect]
     Active Substance: VANCOMYCIN
     Indication: ANTIBIOTIC THERAPY
     Dosage: UNK
     Route: 065
  2. BACLOFEN. [Concomitant]
     Active Substance: BACLOFEN
     Dosage: UNK
     Route: 037
  3. BACLOFEN. [Concomitant]
     Active Substance: BACLOFEN
     Indication: CEREBRAL PALSY
     Dosage: THREE TIMES DAILY
     Route: 048

REACTIONS (1)
  - Acute kidney injury [Recovered/Resolved]
